FAERS Safety Report 9324383 (Version 1)
Quarter: 2013Q2

REPORT INFORMATION
  Report Type: Spontaneous
  Country: US (occurrence: US)
  Receive Date: 20130603
  Receipt Date: 20130603
  Transmission Date: 20140414
  Serious: Yes (Hospitalization)
  Sender: FDA-Public Use
  Company Number: US-ELI_LILLY_AND_COMPANY-US201305006784

PATIENT
  Sex: Female

DRUGS (5)
  1. CYMBALTA [Suspect]
     Indication: DEPRESSION
     Dosage: 60 MG, QD
     Dates: start: 2009
  2. CYMBALTA [Suspect]
     Dosage: 90 MG, QD
  3. CYMBALTA [Suspect]
     Dosage: 60 MG, QD
     Dates: end: 201304
  4. CYMBALTA [Suspect]
     Dosage: 60 MG, WEEKLY (1/W)
  5. CYMBALTA [Suspect]
     Dosage: 30 MG, WEEKLY (1/W)
     Dates: end: 20130506

REACTIONS (12)
  - Staphylococcal infection [Unknown]
  - Drug withdrawal syndrome [Recovered/Resolved]
  - Dizziness [Recovered/Resolved]
  - Drug effect decreased [Unknown]
  - Depression [Unknown]
  - Depression [Unknown]
  - Paraesthesia [Not Recovered/Not Resolved]
  - Dizziness [Not Recovered/Not Resolved]
  - Presyncope [Not Recovered/Not Resolved]
  - Mood altered [Not Recovered/Not Resolved]
  - Dizziness [Not Recovered/Not Resolved]
  - Drug withdrawal syndrome [Not Recovered/Not Resolved]
